FAERS Safety Report 11810092 (Version 1)
Quarter: 2015Q4

REPORT INFORMATION
  Report Type: Spontaneous
  Country: CN (occurrence: CN)
  Receive Date: 20151208
  Receipt Date: 20151208
  Transmission Date: 20160305
  Serious: Yes (Other)
  Sender: FDA-Public Use
  Company Number: CN-ACTAVIS-2015-26871

PATIENT
  Age: 43 Year
  Sex: Female

DRUGS (1)
  1. PROPYLTHIOURACIL. [Suspect]
     Active Substance: PROPYLTHIOURACIL
     Indication: HYPERTHYROIDISM
     Dosage: 50 MG, TID
     Route: 065
     Dates: start: 201308

REACTIONS (3)
  - Agranulocytosis [Recovered/Resolved]
  - Necrotising ulcerative gingivostomatitis [Recovering/Resolving]
  - Osteonecrosis of jaw [Not Recovered/Not Resolved]

NARRATIVE: CASE EVENT DATE: 201310
